FAERS Safety Report 23294885 (Version 3)
Quarter: 2024Q1

REPORT INFORMATION
  Report Type: Spontaneous
  Country: ES (occurrence: ES)
  Receive Date: 20231213
  Receipt Date: 20240102
  Transmission Date: 20240410
  Serious: Yes (Death, Other)
  Sender: FDA-Public Use
  Company Number: None

PATIENT
  Age: 39 Year
  Sex: Male

DRUGS (13)
  1. DEXAMETHASONE [Suspect]
     Active Substance: DEXAMETHASONE
     Dosage: 12 MG
     Route: 065
  2. DEXAMETHASONE [Suspect]
     Active Substance: DEXAMETHASONE
     Indication: COVID-19
     Dosage: 6 MG, Q24H (4 MG INJECTABLE 1 ML VIALFREQUENCY TEXT: EVERY 24 HOURS)
     Route: 042
     Dates: start: 20220818, end: 20220819
  3. ENOXAPARIN SODIUM [Suspect]
     Active Substance: ENOXAPARIN SODIUM
     Indication: Prophylaxis
     Dosage: 40 MG,Q24H (40 MG  (4.000 IU) INJECTABLE 0,4 ML,  1 EVERY 24 HOURS)
     Route: 058
     Dates: start: 20220818
  4. LINEZOLID [Suspect]
     Active Substance: LINEZOLID
     Indication: Pneumonia
     Dosage: 600 MG, Q12H
     Route: 050
     Dates: start: 20220818, end: 20220819
  5. MEROPENEM [Suspect]
     Active Substance: MEROPENEM
     Dosage: 1 G, Q8H
     Route: 042
     Dates: start: 20220818
  6. MEROPENEM [Suspect]
     Active Substance: MEROPENEM
     Indication: Pneumonia
     Dosage: 1 G, Q8H; INJECTABLE
     Route: 042
     Dates: start: 20220818
  7. ACETAMINOPHEN [Suspect]
     Active Substance: ACETAMINOPHEN
     Indication: Pyrexia
     Dosage: UNK
     Route: 050
     Dates: start: 20220818, end: 20220819
  8. TOCILIZUMAB [Suspect]
     Active Substance: TOCILIZUMAB
     Indication: Pyrexia
     Dosage: 600 MG
     Route: 042
     Dates: start: 20220818, end: 20220818
  9. TOCILIZUMAB [Suspect]
     Active Substance: TOCILIZUMAB
     Indication: COVID-19
     Dosage: 600 MG, 1 TOTAL  (CONCENTRATION FOR SOLUTION FOR INFUSION, SINGLE DOSE)
     Route: 042
     Dates: start: 20220818, end: 20220818
  10. TOCILIZUMAB [Suspect]
     Active Substance: TOCILIZUMAB
     Indication: Pneumonia
     Dosage: UNK
     Route: 065
  11. TOCILIZUMAB [Suspect]
     Active Substance: TOCILIZUMAB
     Indication: Pneumonia
  12. TECLISTAMAB [Suspect]
     Active Substance: TECLISTAMAB
     Indication: Plasma cell myeloma refractory
     Dosage: 600 MG, ONCE/SINGLE
     Route: 065
     Dates: start: 20220624, end: 20220812
  13. TECLISTAMAB [Suspect]
     Active Substance: TECLISTAMAB
     Dosage: 600 MG, ONCE/SINGLE
     Route: 065
     Dates: start: 20220818, end: 20220818

REACTIONS (2)
  - Hepatitis fulminant [Fatal]
  - Hepatitis acute [Fatal]

NARRATIVE: CASE EVENT DATE: 20220819
